FAERS Safety Report 13738458 (Version 1)
Quarter: 2017Q3

REPORT INFORMATION
  Report Type: Spontaneous
  Country: US (occurrence: US)
  Receive Date: 20170710
  Receipt Date: 20170710
  Transmission Date: 20171127
  Serious: Yes (Other)
  Sender: FDA-Public Use
  Company Number: US-SAOL THERAPEUTICS-2016SAO01196

PATIENT
  Age: 49 Year
  Sex: Female

DRUGS (4)
  1. DILAUDID [Suspect]
     Active Substance: HYDROMORPHONE HYDROCHLORIDE
     Dosage: 2.5 MG, \DAY
     Route: 037
  2. BACLOFEN. [Suspect]
     Active Substance: BACLOFEN
     Indication: PAIN
  3. CLONIDINE. [Suspect]
     Active Substance: CLONIDINE
     Dosage: 344 ?G, \DAY
     Route: 037
  4. BACLOFEN. [Suspect]
     Active Substance: BACLOFEN
     Indication: PAIN
     Dosage: 103 ?G, \DAY
     Route: 037

REACTIONS (8)
  - Headache [Unknown]
  - Device alarm issue [Unknown]
  - Device failure [Unknown]
  - Off label use [Unknown]
  - Complication associated with device [Unknown]
  - Pain [Unknown]
  - Muscle spasticity [Unknown]
  - Fatigue [Unknown]

NARRATIVE: CASE EVENT DATE: 201612
